FAERS Safety Report 5196455-8 (Version None)
Quarter: 2006Q4

REPORT INFORMATION
  Report Type: 
  Country: None (occurrence: None)
  Receive Date: 20061227
  Receipt Date: 20061212
  Transmission Date: 20070319
  Serious: Yes (Other)
  Sender: FDA-Public Use
  Company Number: 150962ISR

PATIENT
  Age: 79 Year
  Sex: Female

DRUGS (1)
  1. SERTRALINE [Suspect]
     Indication: GENERALISED ANXIETY DISORDER
     Dosage: 25 MG
     Route: 048
     Dates: start: 20020930, end: 20060930

REACTIONS (1)
  - POST PROCEDURAL HAEMORRHAGE [None]
